FAERS Safety Report 11230335 (Version 1)
Quarter: 2015Q2

REPORT INFORMATION
  Report Type: Spontaneous
  Country: US (occurrence: None)
  Receive Date: 20150629
  Receipt Date: 20150629
  Transmission Date: 20150821
  Serious: Yes (Hospitalization)
  Sender: FDA-Public Use
  Company Number: UCM201506-000424

PATIENT

DRUGS (1)
  1. DIVALPROEX SODIUM (DIVALPROEX SODIUM) (DIVALPROEX SODIUM) [Suspect]
     Active Substance: DIVALPROEX SODIUM

REACTIONS (5)
  - Intentional overdose [None]
  - Suicide attempt [None]
  - Asterixis [None]
  - Encephalopathy [None]
  - Toxicity to various agents [None]
